FAERS Safety Report 10676989 (Version 1)
Quarter: 2014Q4

REPORT INFORMATION
  Report Type: Spontaneous
  Country: IT (occurrence: IT)
  Receive Date: 20141226
  Receipt Date: 20141226
  Transmission Date: 20150529
  Serious: Yes (Hospitalization)
  Sender: FDA-Public Use
  Company Number: IT-SA-2014SA175355

PATIENT
  Age: 65 Year
  Sex: Female

DRUGS (6)
  1. PANTOPRAZOLE [Concomitant]
     Active Substance: PANTOPRAZOLE SODIUM
     Route: 048
  2. RIVOTRIL [Concomitant]
     Active Substance: CLONAZEPAM
     Dosage: STRENGTH: 2.5 MG/ML
     Route: 048
  3. HUMALOG [Suspect]
     Active Substance: INSULIN LISPRO
     Indication: DIABETES MELLITUS
     Dosage: DOSE: 10IU ({100)
     Route: 058
     Dates: start: 20141002, end: 20141002
  4. MINIAS [Concomitant]
     Active Substance: LORMETAZEPAM
     Dosage: STRENGTH: 2.5 MG/ML
     Route: 048
  5. LANTUS [Suspect]
     Active Substance: INSULIN GLARGINE
     Indication: DIABETES MELLITUS
     Dosage: DOSE: 20IU ({100), TOTAL
     Route: 058
     Dates: start: 20141002, end: 20141002
  6. GARDENALE [Concomitant]
     Active Substance: PHENOBARBITAL
     Dosage: STRENGTH: 100 MG
     Route: 048

REACTIONS (2)
  - Hyperglycaemia [Unknown]
  - Hyponatraemia [Unknown]

NARRATIVE: CASE EVENT DATE: 20141002
